FAERS Safety Report 8012942-9 (Version None)
Quarter: 2011Q4

REPORT INFORMATION
  Report Type: 
  Country: None (occurrence: None)
  Receive Date: 20111229
  Receipt Date: 20111221
  Transmission Date: 20120403
  Serious: Yes (Other)
  Sender: FDA-Public Use
  Company Number: JP-ASTELLAS-2011JP008256

PATIENT
  Sex: Female
  Weight: 39.5 kg

DRUGS (15)
  1. RABEPRAZOLE SODIUM [Suspect]
     Indication: GASTRIC ULCER
     Dosage: 10 MG, UID/QD
     Route: 048
     Dates: start: 20110428, end: 20110614
  2. STEROID [Concomitant]
     Indication: DERMATOMYOSITIS
     Route: 065
  3. PROGRAF [Suspect]
     Indication: INTERSTITIAL LUNG DISEASE
  4. PREDNISOLONE [Concomitant]
     Indication: DERMATOMYOSITIS
     Dosage: 20 MG, BID
     Route: 048
     Dates: start: 20110428
  5. PREDNISOLONE [Concomitant]
     Dosage: 25 MG, UNKNOWN/D
     Route: 048
     Dates: start: 20110708
  6. NICARDIPINE HCL [Concomitant]
     Indication: HYPERTENSION
     Dosage: 30 MG, CONTINUOUS
     Route: 041
     Dates: start: 20110504, end: 20110509
  7. PREDNISOLONE [Concomitant]
     Indication: INTERSTITIAL LUNG DISEASE
     Dosage: 30 MG, UNKNOWN/D
     Route: 048
     Dates: start: 20110624
  8. LOXONIN [Concomitant]
     Indication: PAIN
     Dosage: 60 MG, PRN
     Route: 048
     Dates: start: 20110429
  9. ZOLPIDEM [Concomitant]
     Indication: INSOMNIA
     Dosage: 5 MG, PRN
     Route: 048
     Dates: start: 20110501
  10. PROGRAF [Suspect]
     Indication: DERMATOMYOSITIS
     Dosage: 3 MG, UID/QD
     Route: 048
     Dates: start: 20110427, end: 20110504
  11. SULFAMETHOXAZOLE AND TRIMETHOPRIM [Suspect]
     Dosage: UNK
     Route: 048
     Dates: start: 20110530, end: 20110615
  12. PREDNISOLONE [Concomitant]
     Dosage: 22 MG, UNKNOWN/D
     Route: 048
     Dates: start: 20110723
  13. ADALAT [Concomitant]
     Indication: HYPERTENSION
     Dosage: 20 MG, BID
     Route: 048
     Dates: start: 20110504
  14. PHENYTOIN SODIUM CAP [Concomitant]
     Dosage: 125 MG, BID
     Route: 041
     Dates: start: 20110504, end: 20110506
  15. DEPAKENE [Concomitant]
     Indication: EPILEPSY
     Dosage: 225 MG, BID
     Route: 048
     Dates: start: 20110506, end: 20110624

REACTIONS (4)
  - OFF LABEL USE [None]
  - THROMBOTIC THROMBOCYTOPENIC PURPURA [None]
  - POSTERIOR REVERSIBLE ENCEPHALOPATHY SYNDROME [None]
  - BACTERIAL TEST POSITIVE [None]
